FAERS Safety Report 15591417 (Version 3)
Quarter: 2018Q4

REPORT INFORMATION
  Report Type: Spontaneous
  Country: US (occurrence: US)
  Receive Date: 20181106
  Receipt Date: 20181201
  Transmission Date: 20190205
  Serious: No
  Sender: FDA-Public Use
  Company Number: US-PFIZER INC-2018441945

PATIENT
  Age: 79 Year
  Sex: Female

DRUGS (1)
  1. GABAPENTIN. [Suspect]
     Active Substance: GABAPENTIN
     Dosage: UNK

REACTIONS (3)
  - Drug ineffective [Unknown]
  - Gait disturbance [Unknown]
  - Asthenia [Unknown]
